FAERS Safety Report 5025475-9 (Version None)
Quarter: 2006Q2

REPORT INFORMATION
  Report Type: 
  Country: None (occurrence: None)
  Receive Date: 20060608
  Receipt Date: 20060526
  Transmission Date: 20061013
  Serious: Yes (Death)
  Sender: FDA-Public Use
  Company Number: 2004S1000223

PATIENT
  Age: 13 Year
  Sex: Male
  Weight: 45 kg

DRUGS (9)
  1. CUBICIN [Suspect]
     Indication: ENDOCARDITIS
     Dosage: 360 MG; Q24H; IV
     Route: 042
  2. CUBICIN [Suspect]
     Indication: ENTEROCOCCAL BACTERAEMIA
     Dosage: 360 MG; Q24H; IV
     Route: 042
  3. VANCOMYCIN [Concomitant]
  4. MEROPENEM [Concomitant]
  5. GENTAMICIN [Concomitant]
  6. VASOPRESSORS [Concomitant]
  7. FENTANYL [Concomitant]
  8. MIDAZOLAM HCL [Concomitant]
  9. CYCLOSPORINE [Concomitant]

REACTIONS (7)
  - ACUTE RESPIRATORY DISTRESS SYNDROME [None]
  - ASPIRATION TRACHEAL ABNORMAL [None]
  - BLOOD ALBUMIN ABNORMAL [None]
  - CANDIDIASIS [None]
  - CONDITION AGGRAVATED [None]
  - CREATINE PHOSPHOKINASE DECREASED [None]
  - GENERAL PHYSICAL HEALTH DETERIORATION [None]
